FAERS Safety Report 14606997 (Version 6)
Quarter: 2020Q3

REPORT INFORMATION
  Report Type: Report from Study
  Country: US (occurrence: US)
  Receive Date: 20180307
  Receipt Date: 20200813
  Transmission Date: 20201102
  Serious: No
  Sender: FDA-Public Use
  Company Number: PHEH2018US009012

PATIENT
  Sex: Male

DRUGS (2)
  1. COSENTYX [Suspect]
     Active Substance: SECUKINUMAB
     Dosage: UNK
     Route: 065
     Dates: start: 20200226
  2. COSENTYX [Suspect]
     Active Substance: SECUKINUMAB
     Indication: ANKYLOSING SPONDYLITIS
     Dosage: 300 MG
     Route: 065

REACTIONS (8)
  - Dizziness [Unknown]
  - Pain in extremity [Unknown]
  - Pruritus [Unknown]
  - Back pain [Unknown]
  - Arthralgia [Unknown]
  - Alopecia [Unknown]
  - Rash [Unknown]
  - Discomfort [Unknown]
